FAERS Safety Report 10029886 (Version 1)
Quarter: 2014Q1

REPORT INFORMATION
  Report Type: Spontaneous
  Country: US (occurrence: None)
  Receive Date: 20140306
  Receipt Date: 20140306
  Transmission Date: 20141002
  Serious: Yes (Hospitalization)
  Sender: FDA-Public Use
  Company Number: 163-21880-13011270

PATIENT
  Age: 53 Year
  Sex: Male

DRUGS (9)
  1. REVLIMID (LENALIDOMIDE) (CAPSULES) [Suspect]
     Indication: PLASMA CELL MYELOMA
     Dosage: 15 MG, 21 IN 21 D, PO
     Route: 048
     Dates: start: 20110517
  2. ALBUTEROL SULFATE (SALBUTAMOL SULFATE) [Concomitant]
  3. COUMADIN(WARFARIN SODIUM) [Concomitant]
  4. CYMBALTA [Concomitant]
  5. DEXAMETHASONE (DEXAMETHASONE) [Concomitant]
  6. DIAZEPAM(DIAZEPAM) [Concomitant]
  7. ENALAPRIL MALEATE (ENALAPRIL MALEATE) [Concomitant]
  8. OMEPRAZOLE(OMEPRAZOLE) [Concomitant]
  9. OXYCODONE HCL (OXYCODONE HYDROCHLORIDE) [Concomitant]

REACTIONS (1)
  - Large intestine perforation [None]
